FAERS Safety Report 7036501-X (Version None)
Quarter: 2010Q4

REPORT INFORMATION
  Report Type: 
  Country: None (occurrence: None)
  Receive Date: 20101011
  Receipt Date: 20101001
  Transmission Date: 20110411
  Serious: No
  Sender: FDA-Public Use
  Company Number: US-BIOGENIDEC-2010BI016716

PATIENT
  Age: 46 Year
  Sex: Female

DRUGS (4)
  1. TYSABRI [Suspect]
     Indication: MULTIPLE SCLEROSIS
     Route: 042
     Dates: start: 20070829
  2. AVONEX [Concomitant]
     Indication: MULTIPLE SCLEROSIS
     Route: 030
     Dates: start: 19970101
  3. AVONEX [Concomitant]
     Route: 030
     Dates: start: 20000417
  4. AVONEX [Concomitant]
     Route: 030
     Dates: start: 20070801

REACTIONS (6)
  - FACIAL BONES FRACTURE [None]
  - FALL [None]
  - FATIGUE [None]
  - JAW FRACTURE [None]
  - MALAISE [None]
  - MULTIPLE SCLEROSIS RELAPSE [None]
